FAERS Safety Report 4776347-6 (Version None)
Quarter: 2005Q3

REPORT INFORMATION
  Report Type: 
  Country: None (occurrence: None)
  Receive Date: 20050921
  Receipt Date: 20050907
  Transmission Date: 20060218
  Serious: Yes (Disabling)
  Sender: FDA-Public Use
  Company Number: GBS050717810

PATIENT
  Age: 29 Year
  Sex: Female
  Weight: 68 kg

DRUGS (2)
  1. FLUOXETINE [Suspect]
     Indication: STRESS
     Dosage: 20 MG
     Dates: start: 20050602, end: 20050610
  2. EPO PROVERA (MEDROXYPROGESTERON ACETATE) [Concomitant]

REACTIONS (7)
  - ALANINE AMINOTRANSFERASE INCREASED [None]
  - BLOOD ALBUMIN INCREASED [None]
  - BLOOD CREATINE DECREASED [None]
  - DERMATITIS ALLERGIC [None]
  - PLATELET COUNT INCREASED [None]
  - POLYARTHRITIS [None]
  - PROTEIN TOTAL INCREASED [None]
